FAERS Safety Report 6582685-7 (Version None)
Quarter: 2010Q1

REPORT INFORMATION
  Report Type: 
  Country: None (occurrence: None)
  Receive Date: 20100212
  Receipt Date: 20100212
  Transmission Date: 20100710
  Serious: Yes (Life-Threatening, Hospitalization)
  Sender: FDA-Public Use
  Company Number: None

PATIENT
  Age: 52 Year
  Sex: Female
  Weight: 64.86 kg

DRUGS (1)
  1. LAMOTRIGINE [Suspect]
     Indication: BIPOLAR I DISORDER
     Dosage: 25 MG AM PO
     Route: 048
     Dates: start: 20080328, end: 20080415

REACTIONS (4)
  - ANGIOEDEMA [None]
  - DIARRHOEA [None]
  - MYALGIA [None]
  - STEVENS-JOHNSON SYNDROME [None]
